FAERS Safety Report 20839609 (Version 1)
Quarter: 2022Q2

REPORT INFORMATION
  Report Type: Spontaneous
  Country: DE (occurrence: None)
  Receive Date: 20220517
  Receipt Date: 20220517
  Transmission Date: 20220721
  Serious: Yes (Other)
  Sender: FDA-Public Use
  Company Number: 2022A151184

PATIENT
  Sex: Male

DRUGS (1)
  1. LYNPARZA [Suspect]
     Active Substance: OLAPARIB
     Indication: Prostate cancer
     Dosage: UNKNOWN
     Route: 048

REACTIONS (5)
  - Arthritis [Unknown]
  - Diabetes mellitus [Unknown]
  - Discomfort [Unknown]
  - Headache [Unknown]
  - Nausea [Unknown]
